FAERS Safety Report 4367815-X (Version None)
Quarter: 2004Q2

REPORT INFORMATION
  Report Type: 
  Country: None (occurrence: None)
  Receive Date: 20040526
  Receipt Date: 20031110
  Transmission Date: 20050107
  Serious: Yes (Hospitalization, Other)
  Sender: FDA-Public Use
  Company Number: USA031152204

PATIENT
  Sex: Female
  Weight: 118 kg

DRUGS (4)
  1. ZYPREXA [Suspect]
     Indication: PARANOIA
     Dosage: 15 MG
  2. PROZAC [Suspect]
     Dosage: 20 MG
  3. DEPAKOTE [Concomitant]
  4. ANTIDEPRESSANT [Concomitant]

REACTIONS (5)
  - DEPRESSION [None]
  - INCREASED APPETITE [None]
  - MANIA [None]
  - SUICIDAL IDEATION [None]
  - WEIGHT INCREASED [None]
